FAERS Safety Report 13754644 (Version 1)
Quarter: 2017Q3

REPORT INFORMATION
  Report Type: Spontaneous
  Country: US (occurrence: US)
  Receive Date: 20170714
  Receipt Date: 20170714
  Transmission Date: 20171127
  Serious: No
  Sender: FDA-Public Use
  Company Number: US-BIOGEN-2017BI00430175

PATIENT
  Sex: Female

DRUGS (1)
  1. TECFIDERA [Suspect]
     Active Substance: DIMETHYL FUMARATE
     Indication: MULTIPLE SCLEROSIS
     Route: 065

REACTIONS (7)
  - Dry skin [Unknown]
  - Palpitations [Unknown]
  - Fatigue [Unknown]
  - Alopecia [Unknown]
  - Menstruation irregular [Unknown]
  - Weight increased [Unknown]
  - Abdominal distension [Unknown]
